FAERS Safety Report 5030655-2 (Version None)
Quarter: 2006Q2

REPORT INFORMATION
  Report Type: 
  Country: None (occurrence: None)
  Receive Date: 20060615
  Receipt Date: 20060612
  Transmission Date: 20061013
  Serious: Yes (Hospitalization)
  Sender: FDA-Public Use
  Company Number: SEWYE721313JUN06

PATIENT
  Age: 62 Year
  Sex: 0

DRUGS (4)
  1. EFEXOR DEPOT (VENLAFAXINE HYDROCHLORIDE, CAPSULE, EXTENDED RELEASE, O) [Suspect]
     Indication: DEPRESSION
     Dosage: 225 MG DAILY ORAL; 300 MG, DAILY
     Route: 048
     Dates: start: 20041112
  2. ANAFRANIL [Concomitant]
  3. REMERON [Concomitant]
  4. LITAREX (LITHIUM CITRATE) [Concomitant]

REACTIONS (3)
  - BLOOD PRESSURE INCREASED [None]
  - EYE DISORDER [None]
  - THROMBOSIS [None]
